FAERS Safety Report 7079013-X (Version None)
Quarter: 2010Q4

REPORT INFORMATION
  Report Type: 
  Country: None (occurrence: None)
  Receive Date: 20101102
  Receipt Date: 20101029
  Transmission Date: 20110411
  Serious: Yes (Death)
  Sender: FDA-Public Use
  Company Number: FR-SANOFI-AVENTIS-2010SA066071

PATIENT
  Age: 73 Year
  Sex: Male

DRUGS (15)
  1. ELOXATIN [Suspect]
     Indication: COLON CANCER
     Route: 041
     Dates: start: 20100813, end: 20100813
  2. AVASTIN [Suspect]
     Indication: COLON CANCER
     Route: 041
     Dates: start: 20100813, end: 20100813
  3. FLUOROURACILE [Suspect]
     Indication: COLON CANCER
     Route: 041
     Dates: start: 20100813, end: 20100813
  4. LEUCOVORIN CALCIUM [Concomitant]
     Indication: COLON CANCER
     Route: 041
     Dates: start: 20100813, end: 20100813
  5. ZOPHREN [Concomitant]
     Indication: CHEMOTHERAPY
     Route: 042
     Dates: start: 20100813, end: 20100813
  6. SOLU-MEDROL [Concomitant]
     Indication: CHEMOTHERAPY
     Route: 042
     Dates: start: 20100813, end: 20100813
  7. OCTREOTIDE ACETATE [Concomitant]
     Dosage: DOSE:1 UNIT(S)
     Route: 058
     Dates: start: 20100722, end: 20100722
  8. PLAVIX [Concomitant]
     Route: 048
     Dates: end: 20100824
  9. PRAVASTATIN [Concomitant]
     Route: 048
     Dates: end: 20100824
  10. TAMSULOSIN HCL [Concomitant]
     Route: 048
     Dates: end: 20100824
  11. AMLODIPINE [Concomitant]
     Route: 048
     Dates: end: 20100824
  12. FORTZAAR [Concomitant]
     Route: 048
     Dates: end: 20100824
  13. PANTOPRAZOLE [Concomitant]
     Route: 048
     Dates: end: 20100824
  14. METEOSPAMYL [Concomitant]
     Route: 048
     Dates: end: 20100824
  15. NOVOMIX [Concomitant]
     Route: 058
     Dates: end: 20100824

REACTIONS (3)
  - INTESTINAL PERFORATION [None]
  - LEUKOPENIA [None]
  - SEPTIC SHOCK [None]
